FAERS Safety Report 6870862-7 (Version None)
Quarter: 2010Q3

REPORT INFORMATION
  Report Type: 
  Country: None (occurrence: None)
  Receive Date: 20100723
  Receipt Date: 20100712
  Transmission Date: 20110219
  Serious: Yes (Hospitalization)
  Sender: FDA-Public Use
  Company Number: PHHY2010JP46112

PATIENT
  Age: 12 Year
  Sex: Male

DRUGS (1)
  1. TEGRETOL [Suspect]
     Indication: EPILEPSY
     Dosage: 1900 MG, UNK
     Route: 048
     Dates: start: 20100708, end: 20100708

REACTIONS (8)
  - ACCIDENTAL OVERDOSE [None]
  - ANTICONVULSANT DRUG LEVEL INCREASED [None]
  - CONVULSION [None]
  - DIZZINESS [None]
  - DRUG DOSE OMISSION [None]
  - HYPERSOMNIA [None]
  - TREATMENT NONCOMPLIANCE [None]
  - WHEELCHAIR USER [None]
